FAERS Safety Report 10399241 (Version 1)
Quarter: 2014Q3

REPORT INFORMATION
  Report Type: Spontaneous
  Country: US (occurrence: None)
  Receive Date: 20140818
  Receipt Date: 20140818
  Transmission Date: 20150326
  Serious: Yes (Hospitalization)
  Sender: FDA-Public Use
  Company Number: None

PATIENT
  Age: 35 Year
  Sex: Female
  Weight: 58.51 kg

DRUGS (1)
  1. CIPROFLOXACIN. [Suspect]
     Active Substance: CIPROFLOXACIN
     Indication: URINARY TRACT INFECTION
     Dosage: 1 PILL TWICE DAILY TAKEN BY MOUTH
     Route: 048
     Dates: start: 20140811, end: 20140811

REACTIONS (9)
  - Dry eye [None]
  - Asthenia [None]
  - Decreased appetite [None]
  - Tremor [None]
  - Dry mouth [None]
  - Paraesthesia [None]
  - Anxiety [None]
  - Nausea [None]
  - Panic reaction [None]

NARRATIVE: CASE EVENT DATE: 20140811
